FAERS Safety Report 8525502-8 (Version None)
Quarter: 2012Q3

REPORT INFORMATION
  Report Type: 
  Country: None (occurrence: None)
  Receive Date: 20120720
  Receipt Date: 20120713
  Transmission Date: 20120928
  Serious: Yes (Hospitalization)
  Sender: FDA-Public Use
  Company Number: GB-JNJFOC-20120707613

PATIENT
  Age: 20 Year
  Sex: Female
  Weight: 81 kg

DRUGS (7)
  1. FOLIC ACID [Concomitant]
     Dates: start: 20060404
  2. METHOTREXATE [Concomitant]
     Dates: start: 20060404
  3. CYCLOSPORINE [Concomitant]
     Dates: start: 20101118
  4. REMICADE [Suspect]
     Indication: PSORIASIS
     Route: 042
     Dates: start: 20111104
  5. PENICILLIN [Concomitant]
     Dates: start: 20120324, end: 20120327
  6. IBUPROFEN [Concomitant]
     Dates: start: 20100701
  7. NAPROXEN [Concomitant]
     Dates: start: 20100701

REACTIONS (1)
  - VIRAL INFECTION [None]
